FAERS Safety Report 7495406-0 (Version None)
Quarter: 2011Q2

REPORT INFORMATION
  Report Type: 
  Country: None (occurrence: None)
  Receive Date: 20110513
  Receipt Date: 20110509
  Transmission Date: 20111010
  Serious: Yes (Hospitalization, Other)
  Sender: FDA-Public Use
  Company Number: 20109104

PATIENT
  Sex: Female

DRUGS (7)
  1. FAMOTIDINE [Concomitant]
  2. BACLOFEN [Suspect]
     Indication: MUSCLE SPASTICITY
     Dosage: 200 MCG, DAILY, INTRATHECAL
     Route: 037
  3. PREDNISOLONE [Concomitant]
  4. TIZANIDINE HYDROCHLORIDE [Concomitant]
  5. GLAKAY [Concomitant]
  6. ALOSENN [Concomitant]
  7. GABALON [Concomitant]

REACTIONS (6)
  - GASTRITIS [None]
  - SYSTEMIC LUPUS ERYTHEMATOSUS [None]
  - PYREXIA [None]
  - CHOLECYSTITIS [None]
  - PNEUMONIA [None]
  - BEDRIDDEN [None]
